FAERS Safety Report 7786458-9 (Version None)
Quarter: 2011Q3

REPORT INFORMATION
  Report Type: 
  Country: None (occurrence: None)
  Receive Date: 20110928
  Receipt Date: 20110928
  Transmission Date: 20111222
  Serious: Yes (Hospitalization, Disabling)
  Sender: FDA-Public Use
  Company Number: None

PATIENT
  Age: 73 Year
  Sex: Female

DRUGS (3)
  1. LEVAQUIN [Suspect]
     Indication: CHRONIC OBSTRUCTIVE PULMONARY DISEASE
     Dosage: 500MG DAILY BY MOUTH
     Route: 048
     Dates: start: 20110903, end: 20110914
  2. LEVAQUIN [Suspect]
     Indication: URINARY TRACT INFECTION
     Dosage: 500MG DAILY BY MOUTH
     Route: 048
     Dates: start: 20110903, end: 20110914
  3. LEVAQUIN [Suspect]
     Indication: PNEUMONIA
     Dosage: 500MG DAILY BY MOUTH
     Route: 048
     Dates: start: 20110903, end: 20110914

REACTIONS (4)
  - LEUKOCYTOSIS [None]
  - TENDON PAIN [None]
  - PNEUMONIA [None]
  - BEDRIDDEN [None]
